FAERS Safety Report 6106021-5 (Version None)
Quarter: 2009Q1

REPORT INFORMATION
  Report Type: 
  Country: None (occurrence: None)
  Receive Date: 20090306
  Receipt Date: 20090224
  Transmission Date: 20090719
  Serious: Yes (Hospitalization)
  Sender: FDA-Public Use
  Company Number: FR-ROCHE-616948

PATIENT
  Sex: Female
  Weight: 83 kg

DRUGS (14)
  1. METHOXY POLYETHYLENE GLYCOL-EPOETIN BETA [Suspect]
     Route: 065
     Dates: start: 20081208
  2. CRESTOR [Concomitant]
     Dates: start: 20090121
  3. KENZEN [Concomitant]
     Dates: start: 20081219
  4. PLAVIX [Concomitant]
  5. PREVISCAN [Concomitant]
  6. INSULIN [Concomitant]
  7. STABLON [Concomitant]
  8. ATENOLOL [Concomitant]
  9. DISCOTRINE [Concomitant]
  10. MOTILIUM [Concomitant]
  11. NEXIUM [Concomitant]
  12. CALTRATE [Concomitant]
     Dates: start: 20080225
  13. FOSRENOL [Concomitant]
     Dates: start: 20080324
  14. NOVOLOG MIX 70/30 [Concomitant]

REACTIONS (2)
  - HEAD INJURY [None]
  - SUBDURAL HAEMATOMA [None]
